FAERS Safety Report 15520193 (Version 1)
Quarter: 2018Q4

REPORT INFORMATION
  Report Type: Report from Study
  Country: US (occurrence: US)
  Receive Date: 20181017
  Receipt Date: 20181017
  Transmission Date: 20190205
  Serious: Yes (Hospitalization, Other)
  Sender: FDA-Public Use
  Company Number: PHEH2018US043139

PATIENT
  Age: 15 Year
  Sex: Female

DRUGS (1)
  1. GILENYA [Suspect]
     Active Substance: FINGOLIMOD HYDROCHLORIDE
     Indication: MULTIPLE SCLEROSIS
     Dosage: 0.5 MG, QD
     Route: 048
     Dates: start: 20180806

REACTIONS (5)
  - Visual impairment [Recovering/Resolving]
  - Eye movement disorder [Recovering/Resolving]
  - Vision blurred [Recovering/Resolving]
  - Hepatic enzyme increased [Recovering/Resolving]
  - Diplopia [Recovering/Resolving]

NARRATIVE: CASE EVENT DATE: 20180826
